FAERS Safety Report 4263207-2 (Version None)
Quarter: 2004Q1

REPORT INFORMATION
  Report Type: 
  Country: None (occurrence: None)
  Receive Date: 20040105
  Receipt Date: 20031210
  Transmission Date: 20041129
  Serious: Yes (Death, Other)
  Sender: FDA-Public Use
  Company Number: JP-BRISTOL-MYERS SQUIBB COMPANY-12455184

PATIENT
  Age: 79 Year
  Sex: Female

DRUGS (6)
  1. TAXOL [Suspect]
     Indication: GASTRIC CANCER
     Route: 042
     Dates: start: 20031119, end: 20031119
  2. DECADRON [Concomitant]
     Route: 042
     Dates: start: 20031119, end: 20031119
  3. RESTAMIN [Concomitant]
     Route: 048
     Dates: start: 20031119, end: 20031119
  4. GASTER [Concomitant]
     Route: 042
     Dates: start: 20031119, end: 20031119
  5. DIGOSIN [Concomitant]
     Route: 048
     Dates: start: 20031020, end: 20031120
  6. LASIX [Concomitant]
     Route: 048
     Dates: start: 20031104, end: 20031120

REACTIONS (8)
  - BONE MARROW DEPRESSION [None]
  - GASTRIC CANCER [None]
  - MALIGNANT NEOPLASM PROGRESSION [None]
  - METASTASES TO PERITONEUM [None]
  - PLATELET COUNT DECREASED [None]
  - PLEURAL EFFUSION [None]
  - RED BLOOD CELL COUNT DECREASED [None]
  - RENAL FAILURE ACUTE [None]
